FAERS Safety Report 16464758 (Version 1)
Quarter: 2019Q2

REPORT INFORMATION
  Report Type: Spontaneous
  Country: JP (occurrence: JP)
  Receive Date: 20190621
  Receipt Date: 20190621
  Transmission Date: 20190711
  Serious: Yes (Death, Other)
  Sender: FDA-Public Use
  Company Number: JP-BAXTER-2019BAX012332

PATIENT
  Age: 18 Year
  Sex: Male

DRUGS (19)
  1. CARBOPLATIN. [Suspect]
     Active Substance: CARBOPLATIN
     Indication: HISTIOCYTIC SARCOMA
     Dosage: SIX CYCLES
     Route: 065
  2. CARBOPLATIN. [Suspect]
     Active Substance: CARBOPLATIN
     Dosage: REDUCED ICE THERAPY
     Route: 065
  3. TRAMETINIB [Suspect]
     Active Substance: TRAMETINIB
     Dosage: REDUCE AND STOPPED
     Route: 048
  4. CELLTOP 100 MG/5 ML, SOLUTION INJECTABLE POUR PERFUSION [Suspect]
     Active Substance: ETOPOSIDE
     Indication: RECURRENT CANCER
     Dosage: REDUCED ICE THERAPY
     Route: 065
  5. PREDNISOLONE. [Suspect]
     Active Substance: PREDNISOLONE
     Indication: ROSAI-DORFMAN SYNDROME
     Dosage: 3 YEARS BEFORE, BASELINE THERAPY
     Route: 065
  6. CELLTOP 100 MG/5 ML, SOLUTION INJECTABLE POUR PERFUSION [Suspect]
     Active Substance: ETOPOSIDE
     Indication: ROSAI-DORFMAN SYNDROME
     Dosage: 3 YEARS BEFORE
     Route: 065
  7. CARBOPLATIN. [Suspect]
     Active Substance: CARBOPLATIN
     Indication: ROSAI-DORFMAN SYNDROME
     Dosage: 3 YEARS BEFORE
     Route: 065
  8. CARBOPLATIN. [Suspect]
     Active Substance: CARBOPLATIN
     Indication: RECURRENT CANCER
     Dosage: AFTER 3 YEARS, TWO CYCLES
     Route: 065
  9. TRAMETINIB [Suspect]
     Active Substance: TRAMETINIB
     Indication: HISTIOCYTIC SARCOMA
     Route: 048
  10. HOLOXAN [Suspect]
     Active Substance: IFOSFAMIDE
     Indication: ROSAI-DORFMAN SYNDROME
     Dosage: 3 YEARS BEFORE
     Route: 065
  11. PREDNISOLONE. [Suspect]
     Active Substance: PREDNISOLONE
     Indication: RECURRENT CANCER
     Dosage: AFTER 3 YEARS
     Route: 065
  12. CELLTOP 100 MG/5 ML, SOLUTION INJECTABLE POUR PERFUSION [Suspect]
     Active Substance: ETOPOSIDE
     Indication: HISTIOCYTIC SARCOMA
     Dosage: AFTER 3 YEARS, TWO CYCLES
     Route: 065
  13. HOLOXAN [Suspect]
     Active Substance: IFOSFAMIDE
     Indication: HISTIOCYTIC SARCOMA
     Dosage: AFTER 3 YEARS, TWO CYCLES
     Route: 065
  14. HOLOXAN [Suspect]
     Active Substance: IFOSFAMIDE
     Indication: RECURRENT CANCER
     Dosage: REDUCED ICE THERAPY
     Route: 065
  15. PREDNISOLONE. [Suspect]
     Active Substance: PREDNISOLONE
     Dosage: DOSE ESCALATION
     Route: 065
  16. TRAMETINIB [Suspect]
     Active Substance: TRAMETINIB
     Dosage: RESTARTED
     Route: 048
  17. CLADRIBINE. [Concomitant]
     Active Substance: CLADRIBINE
     Indication: ROSAI-DORFMAN SYNDROME
     Dosage: 3 YEARS BEFORE
     Route: 065
  18. PREDNISOLONE. [Suspect]
     Active Substance: PREDNISOLONE
     Indication: HISTIOCYTIC SARCOMA
     Dosage: 3 YEARS BEFORE, DOSE ESCALATION
     Route: 065
  19. TRAMETINIB [Suspect]
     Active Substance: TRAMETINIB
     Indication: RECURRENT CANCER
     Dosage: DOSE REDUCTION TO 0.5 MG
     Route: 048

REACTIONS (4)
  - Small intestinal perforation [Fatal]
  - Gastrointestinal haemorrhage [Unknown]
  - Sepsis [Unknown]
  - Pancreatic enzymes increased [Unknown]
